FAERS Safety Report 12882203 (Version 2)
Quarter: 2017Q1

REPORT INFORMATION
  Report Type: Spontaneous
  Country: US (occurrence: US)
  Receive Date: 20161025
  Receipt Date: 20170202
  Transmission Date: 20170428
  Serious: Yes (Hospitalization, Other)
  Sender: FDA-Public Use
  Company Number: US-ASTRAZENECA-2016SF04386

PATIENT
  Age: 58 Year
  Sex: Female
  Weight: 102.1 kg

DRUGS (12)
  1. XGEVA [Suspect]
     Active Substance: DENOSUMAB
     Indication: BONE DISORDER
     Dosage: INJECTION GIVEN EVERY 21 DAYS OR ONCE A MONTH
     Route: 065
     Dates: start: 2015
  2. FASLODEX [Suspect]
     Active Substance: FULVESTRANT
     Indication: HORMONE SUPPRESSION THERAPY
     Dosage: INJECTION EVERY 21 DAYS
     Route: 030
     Dates: start: 2015, end: 201701
  3. TOPROL XL [Suspect]
     Active Substance: METOPROLOL SUCCINATE
     Indication: HYPERTENSION
     Route: 048
  4. HIGH BLOOD PRESSURE MEDICATIONS [Concomitant]
  5. IBRANCE [Suspect]
     Active Substance: PALBOCICLIB
     Indication: BREAST CANCER RECURRENT
     Route: 048
     Dates: start: 201601
  6. XGEVA [Suspect]
     Active Substance: DENOSUMAB
     Indication: BONE DISORDER
     Dosage: INJECTION ONCE A MONTH
     Route: 065
     Dates: start: 201601
  7. HIGH BLOOD PRESSURE MEDICATIONS [Concomitant]
  8. FASLODEX [Suspect]
     Active Substance: FULVESTRANT
     Indication: HORMONE SUPPRESSION THERAPY
     Dosage: INJECTION ONCE A MONTH
     Route: 030
     Dates: start: 201601
  9. FASLODEX [Suspect]
     Active Substance: FULVESTRANT
     Indication: BREAST CANCER RECURRENT
     Dosage: INJECTION EVERY 21 DAYS
     Route: 030
     Dates: start: 2015, end: 201701
  10. FASLODEX [Suspect]
     Active Substance: FULVESTRANT
     Indication: BREAST CANCER RECURRENT
     Dosage: INJECTION ONCE A MONTH
     Route: 030
     Dates: start: 201601
  11. IBRANCE [Suspect]
     Active Substance: PALBOCICLIB
     Indication: BREAST CANCER RECURRENT
     Route: 048
     Dates: start: 2015
  12. LEXAPRO [Concomitant]
     Active Substance: ESCITALOPRAM OXALATE
     Indication: ANXIETY
     Route: 048
     Dates: start: 2009

REACTIONS (13)
  - Drug ineffective [Not Recovered/Not Resolved]
  - Gait disturbance [Recovered/Resolved]
  - Feeling abnormal [Recovered/Resolved]
  - Decreased appetite [Recovered/Resolved]
  - Gastrooesophageal reflux disease [Not Recovered/Not Resolved]
  - Bone neoplasm [Unknown]
  - Palpitations [Recovered/Resolved]
  - Weight increased [Not Recovered/Not Resolved]
  - Thrombosis [Unknown]
  - Dyspnoea [Not Recovered/Not Resolved]
  - Hypertension [Not Recovered/Not Resolved]
  - Lethargy [Not Recovered/Not Resolved]
  - Muscular weakness [Recovered/Resolved]

NARRATIVE: CASE EVENT DATE: 2015
